FAERS Safety Report 4474830-4 (Version None)
Quarter: 2004Q4

REPORT INFORMATION
  Report Type: 
  Country: None (occurrence: None)
  Receive Date: 20041012
  Receipt Date: 20040927
  Transmission Date: 20050328
  Serious: Yes (Hospitalization)
  Sender: FDA-Public Use
  Company Number: 2004074610

PATIENT
  Age: 37 Year
  Sex: Female

DRUGS (3)
  1. GEODON [Suspect]
     Indication: SCHIZOPHRENIA
     Dosage: 40 MG (DAILY), ORAL
     Route: 048
  2. RISPERDAL [Concomitant]
  3. ALL OTHER THERAPEUTIC PRODUCTS (ALL OTHER THERAPEUTIC PRODUCTS) [Concomitant]

REACTIONS (6)
  - ASTHENIA [None]
  - CHOREA [None]
  - HYPONATRAEMIA [None]
  - PYREXIA [None]
  - RESTLESSNESS [None]
  - TREMOR [None]
